FAERS Safety Report 16416882 (Version 2)
Quarter: 2019Q2

REPORT INFORMATION
  Report Type: Spontaneous
  Country: US (occurrence: US)
  Receive Date: 20190611
  Receipt Date: 20190624
  Transmission Date: 20190711
  Serious: Yes (Death)
  Sender: FDA-Public Use
  Company Number: US-SA-2019SA158088

PATIENT
  Age: 70 Year
  Sex: Male

DRUGS (2)
  1. BCG FOR IMMUNOTHERAPY [Suspect]
     Active Substance: BACILLUS CALMETTE-GUERIN ANTIGEN, UNSPECIFIED SUBSTRAIN
     Indication: BLADDER CANCER
     Route: 043
  2. BCG FOR IMMUNOTHERAPY [Suspect]
     Active Substance: BACILLUS CALMETTE-GUERIN ANTIGEN, UNSPECIFIED SUBSTRAIN
     Route: 043

REACTIONS (6)
  - Disseminated Bacillus Calmette-Guerin infection [Fatal]
  - Urothelium erosion [Fatal]
  - Mental status changes [Fatal]
  - Asthenia [Fatal]
  - Sepsis [Fatal]
  - Pyrexia [Fatal]
